FAERS Safety Report 9484522 (Version 1)
Quarter: 2013Q3

REPORT INFORMATION
  Report Type: Spontaneous
  Country: US (occurrence: US)
  Receive Date: 20130828
  Receipt Date: 20130828
  Transmission Date: 20140515
  Serious: Yes (Hospitalization)
  Sender: FDA-Public Use
  Company Number: US-AMGEN-KDL426671

PATIENT
  Age: 70 Year
  Sex: Female

DRUGS (1)
  1. ENBREL [Suspect]
     Indication: RHEUMATOID ARTHRITIS
     Dosage: 50 MG, QMO
     Route: 058
     Dates: start: 20081001, end: 200904

REACTIONS (6)
  - Eye infection [Unknown]
  - Eye discharge [Unknown]
  - Pyrexia [Unknown]
  - Rash [Unknown]
  - Gastrooesophageal reflux disease [Recovered/Resolved]
  - Inflammation [Recovered/Resolved]
